FAERS Safety Report 8281066 (Version 3)
Quarter: 2023Q1

REPORT INFORMATION
  Report Type: Spontaneous
  Country: US (occurrence: None)
  Receive Date: 20111208
  Receipt Date: 20230123
  Transmission Date: 20230417
  Serious: Yes (Hospitalization, Other)
  Sender: FDA-Public Use
  Company Number: US-ROCHE-1018094

PATIENT
  Age: 64 Year
  Sex: Female

DRUGS (5)
  1. BONIVA [Suspect]
     Active Substance: IBANDRONATE SODIUM
     Indication: Osteoporosis
     Route: 065
     Dates: start: 200902, end: 201003
  2. BONIVA [Suspect]
     Active Substance: IBANDRONATE SODIUM
     Indication: Osteitis deformans
  3. FOSAMAX [Suspect]
     Active Substance: ALENDRONATE SODIUM
     Indication: Osteoporosis
     Route: 065
     Dates: start: 200304, end: 200802
  4. FOSAMAX [Suspect]
     Active Substance: ALENDRONATE SODIUM
     Indication: Osteitis deformans
     Route: 065
     Dates: start: 200802, end: 200902
  5. ALENDRONATE SODIUM [Suspect]
     Active Substance: ALENDRONATE SODIUM
     Indication: Product used for unknown indication
     Route: 065
     Dates: start: 200802, end: 200809

REACTIONS (10)
  - Stress fracture [Unknown]
  - Femur fracture [Unknown]
  - Bone disorder [Unknown]
  - Low turnover osteopathy [Unknown]
  - Toxicity to various agents [Unknown]
  - Toxicity to various agents [Unknown]
  - Emotional distress [Unknown]
  - Anxiety [Unknown]
  - Depression [Unknown]
  - Stress fracture [Unknown]

NARRATIVE: CASE EVENT DATE: 20080221
